FAERS Safety Report 8199561-9 (Version None)
Quarter: 2012Q1

REPORT INFORMATION
  Report Type: 
  Country: None (occurrence: None)
  Receive Date: 20120310
  Receipt Date: 20120104
  Transmission Date: 20120608
  Serious: No
  Sender: FDA-Public Use
  Company Number: US-PFIZER INC-2012003496

PATIENT
  Sex: Female

DRUGS (3)
  1. TARCEVA [Suspect]
     Dosage: UNK
  2. XALKORI [Suspect]
     Indication: NON-SMALL CELL LUNG CANCER
     Dosage: 250 MG, 2X/DAY
  3. XALKORI [Suspect]
     Dosage: 250 MG, 1X/DAY

REACTIONS (2)
  - DIARRHOEA [None]
  - VISUAL BRIGHTNESS [None]
